FAERS Safety Report 14665789 (Version 1)
Quarter: 2018Q1

REPORT INFORMATION
  Report Type: Spontaneous
  Country: GB (occurrence: GB)
  Receive Date: 20180321
  Receipt Date: 20180321
  Transmission Date: 20180509
  Serious: Yes (Congenital Anomaly, Other)
  Sender: FDA-Public Use
  Company Number: GB-ABBVIE-18P-167-2289512-00

PATIENT
  Sex: Female

DRUGS (1)
  1. EPILIM [Suspect]
     Active Substance: VALPROATE SODIUM
     Indication: MATERNAL EXPOSURE TIMING UNSPECIFIED
     Route: 064

REACTIONS (19)
  - Hypotonia [Unknown]
  - Constipation [Not Recovered/Not Resolved]
  - Aggression [Unknown]
  - Microcephaly [Unknown]
  - Autism spectrum disorder [Unknown]
  - Social avoidant behaviour [Unknown]
  - Dyspraxia [Unknown]
  - Foot deformity [Unknown]
  - Learning disorder [Unknown]
  - Foetal anticonvulsant syndrome [Unknown]
  - Social anxiety disorder [Unknown]
  - Hypermobility syndrome [Unknown]
  - Developmental hip dysplasia [Unknown]
  - Foetal exposure during pregnancy [Unknown]
  - Movement disorder [Unknown]
  - Anger [Unknown]
  - Lordosis [Unknown]
  - Speech disorder [Unknown]
  - Petit mal epilepsy [Unknown]
